FAERS Safety Report 5308861-9 (Version None)
Quarter: 2007Q2

REPORT INFORMATION
  Report Type: 
  Country: None (occurrence: None)
  Receive Date: 20070419
  Receipt Date: 20070406
  Transmission Date: 20071010
  Serious: Yes (Life-Threatening)
  Sender: FDA-Public Use
  Company Number: 200610418BBE

PATIENT
  Age: 52 Year
  Sex: Male
  Weight: 64 kg

DRUGS (8)
  1. IGIVNEX - TALECRIS (IMMUNE GLOBULIN IV (HUMAN), CAPRYLATE/CHROMATOGRAP [Suspect]
     Dosage: 30 GM; 1X;IV
     Route: 042
     Dates: start: 20061015, end: 20061016
  2. CEFUROXIME (CON.) [Concomitant]
  3. INEXIUM /01479302/ (CON.) [Concomitant]
  4. COLACE (CON.) [Concomitant]
  5. DILANTIN /00017401/ (CON.) [Concomitant]
  6. PREDNISONE (CON.) [Concomitant]
  7. NYSTATIN (CON.) [Concomitant]
  8. ALBUMIN (CON.) [Concomitant]

REACTIONS (1)
  - HYPERSENSITIVITY [None]
